FAERS Safety Report 11090894 (Version 2)
Quarter: 2015Q2

REPORT INFORMATION
  Report Type: Spontaneous
  Country: US (occurrence: US)
  Receive Date: 20150505
  Receipt Date: 20150506
  Transmission Date: 20150821
  Serious: Yes (Hospitalization, Other)
  Sender: FDA-Public Use
  Company Number: US-ASTRAZENECA-2015SE41029

PATIENT
  Age: 32136 Day
  Sex: Male

DRUGS (3)
  1. MERREM [Suspect]
     Active Substance: MEROPENEM
     Indication: BACTERIAL INFECTION
     Route: 042
  2. METOPROLOL [Suspect]
     Active Substance: METOPROLOL
     Indication: CARDIAC DISORDER
     Dosage: LOPRESSOR
     Route: 065
  3. METOPROLOL [Suspect]
     Active Substance: METOPROLOL
     Indication: CARDIAC DISORDER
     Route: 065

REACTIONS (35)
  - Sepsis [Unknown]
  - Renal impairment [Unknown]
  - Ejection fraction decreased [Unknown]
  - Dehydration [Unknown]
  - Cough [Unknown]
  - Scratch [Unknown]
  - Dyspnoea [Unknown]
  - Chills [Unknown]
  - Apnoea [Unknown]
  - Prostatomegaly [Unknown]
  - Diarrhoea [Unknown]
  - Pruritus [Unknown]
  - Wheezing [Unknown]
  - Pyrexia [Unknown]
  - Thrombosis [Unknown]
  - Cardiac disorder [Unknown]
  - Brain natriuretic peptide increased [Unknown]
  - Swelling [Unknown]
  - Drug effect incomplete [Unknown]
  - Troponin increased [Unknown]
  - Blood pressure decreased [Unknown]
  - White blood cell count increased [Recovering/Resolving]
  - Gastrointestinal sounds abnormal [Unknown]
  - Urine flow decreased [Unknown]
  - Pain in extremity [Unknown]
  - Lethargy [Unknown]
  - Peripheral swelling [Unknown]
  - Abasia [Unknown]
  - Renal failure [Unknown]
  - Urinary retention [Unknown]
  - Myocardial infarction [Unknown]
  - Device related infection [Unknown]
  - Weight decreased [Unknown]
  - Tremor [Unknown]
  - Hypertension [Unknown]

NARRATIVE: CASE EVENT DATE: 20150302
